FAERS Safety Report 6157526-2 (Version None)
Quarter: 2009Q2

REPORT INFORMATION
  Report Type: 
  Country: None (occurrence: None)
  Receive Date: 20090416
  Receipt Date: 20090406
  Transmission Date: 20091009
  Serious: Yes (Life-Threatening)
  Sender: FDA-Public Use
  Company Number: GB-PFIZER INC-2009193517

PATIENT

DRUGS (5)
  1. METHOTREXATE SODIUM [Suspect]
     Indication: CROHN'S DISEASE
     Dosage: 25 MG/WEEK
  2. PREDNISOLONE AND PREDNISOLONE STEAGLATE [Suspect]
     Indication: CROHN'S DISEASE
     Dosage: 40 MG/DAY
  3. AZATHIOPRINE [Suspect]
     Indication: CROHN'S DISEASE
     Dosage: UNK
     Dates: start: 20030101
  4. INFLIXIMAB [Suspect]
     Indication: CROHN'S DISEASE
     Dosage: UNK
     Dates: start: 20040101
  5. INFLIXIMAB [Suspect]
     Dosage: 10 MG/KG, UNK

REACTIONS (10)
  - CROHN'S DISEASE [None]
  - HYPOTENSION [None]
  - MALAISE [None]
  - MENINGITIS LISTERIA [None]
  - MENTAL STATUS CHANGES [None]
  - MUSCULOSKELETAL STIFFNESS [None]
  - MYALGIA [None]
  - NIGHT SWEATS [None]
  - PYREXIA [None]
  - TACHYCARDIA [None]
